FAERS Safety Report 21371812 (Version 1)
Quarter: 2022Q3

REPORT INFORMATION
  Report Type: Spontaneous
  Country: US (occurrence: US)
  Receive Date: 20220923
  Receipt Date: 20220923
  Transmission Date: 20221027
  Serious: No
  Sender: FDA-Public Use
  Company Number: US-BAUSCH-BL-2022-022136

PATIENT
  Age: 15 Year
  Sex: Female

DRUGS (1)
  1. BENZOYL PEROXIDE\ERYTHROMYCIN [Suspect]
     Active Substance: BENZOYL PEROXIDE\ERYTHROMYCIN
     Indication: Acne
     Route: 061
     Dates: start: 20220902, end: 20220913

REACTIONS (2)
  - Application site pain [Unknown]
  - Product physical issue [Unknown]

NARRATIVE: CASE EVENT DATE: 20220901
